FAERS Safety Report 6076570-7 (Version None)
Quarter: 2009Q1

REPORT INFORMATION
  Report Type: 
  Country: None (occurrence: None)
  Receive Date: 20090211
  Receipt Date: 20090130
  Transmission Date: 20090719
  Serious: Yes (Other)
  Sender: FDA-Public Use
  Company Number: DSU-2008-01665

PATIENT
  Age: 70 Year
  Sex: Male
  Weight: 127.0072 kg

DRUGS (7)
  1. BENICAR HCT [Suspect]
     Indication: HYPERTENSION
     Dosage: PER ORAL
     Route: 048
     Dates: start: 20070101, end: 20070101
  2. TIKOSYN [Suspect]
     Indication: ATRIAL FIBRILLATION
     Dosage: 1000 MCG (500 MCG, BID)
     Dates: start: 20060101
  3. COUMADIN (WARFARIN) (WARFARIN) [Concomitant]
  4. FUROSEMIDE (FUROSEMIDE) (FUROSEMIDE) [Concomitant]
  5. KLOR-CON (POTASSIUM CHLORIDE) (POTASSIUM CHLORIDE) [Concomitant]
  6. FLOMAX (TAMSULOSIN) (TAMSULOSIN) [Concomitant]
  7. ADVICOR (NICOTINIC ACID, LOVASTATIN) (NICOTINIC ACID, LOVASTATIN) [Concomitant]

REACTIONS (5)
  - ARRHYTHMIA [None]
  - DRUG INTERACTION [None]
  - HEART RATE INCREASED [None]
  - HEART RATE IRREGULAR [None]
  - URINARY TRACT INFECTION [None]
